FAERS Safety Report 10257077 (Version 1)
Quarter: 2014Q2

REPORT INFORMATION
  Report Type: Spontaneous
  Country: US (occurrence: US)
  Receive Date: 20140625
  Receipt Date: 20140625
  Transmission Date: 20141212
  Serious: Yes (Other)
  Sender: FDA-Public Use
  Company Number: US-AMGEN-USASP2014046271

PATIENT
  Age: 46 Year
  Sex: Female
  Weight: 131.5 kg

DRUGS (8)
  1. ENBREL [Suspect]
     Indication: PSORIATIC ARTHROPATHY
     Dosage: 50 MG, QWK
     Route: 058
     Dates: start: 201404, end: 20140618
  2. ENBREL [Suspect]
     Indication: PSORIASIS
  3. PRILOSEC                           /00661201/ [Concomitant]
  4. ASPIRIN [Concomitant]
     Dosage: UNK
  5. LASIX                              /00032601/ [Concomitant]
     Dosage: UNK
  6. METOPROLOL [Concomitant]
     Dosage: UNK
  7. METFORMIN [Concomitant]
     Dosage: UNK
  8. LIPITOR [Concomitant]
     Dosage: UNK

REACTIONS (1)
  - Hepatic enzyme increased [Unknown]
